FAERS Safety Report 4949239-7 (Version None)
Quarter: 2006Q1

REPORT INFORMATION
  Report Type: 
  Country: None (occurrence: None)
  Receive Date: 20060321
  Receipt Date: 20050928
  Transmission Date: 20060701
  Serious: Yes (Hospitalization)
  Sender: FDA-Public Use
  Company Number: PHBS2005JP14306

PATIENT
  Age: 61 Year
  Sex: Male

DRUGS (5)
  1. TACROLIMUS [Suspect]
     Indication: RENAL TRANSPLANT
     Route: 048
     Dates: start: 20031117
  2. CELLCEPT [Concomitant]
     Indication: RENAL TRANSPLANT
     Route: 048
     Dates: start: 20031117
  3. STEROIDS NOS [Suspect]
     Indication: RENAL TRANSPLANT
     Route: 048
     Dates: start: 20031117
  4. SIMULECT [Suspect]
     Indication: RENAL TRANSPLANT
     Dosage: UNK, UNK
     Route: 042
     Dates: start: 20031117, end: 20031117
  5. SIMULECT [Suspect]
     Route: 042
     Dates: start: 20031121, end: 20031121

REACTIONS (10)
  - ADRENALECTOMY [None]
  - BLOOD CATECHOLAMINES INCREASED [None]
  - BLOOD PRESSURE INCREASED [None]
  - CATECHOLAMINES URINE INCREASED [None]
  - DIABETES MELLITUS [None]
  - DYSPEPSIA [None]
  - HYPERHIDROSIS [None]
  - HYPERTENSION [None]
  - PHAEOCHROMOCYTOMA [None]
  - VANILLYL MANDELIC ACID URINE INCREASED [None]
